FAERS Safety Report 8974362 (Version 1)
Quarter: 2013Q1

REPORT INFORMATION
  Report Type: Spontaneous
  Country: US (occurrence: None)
  Receive Date: 20121217
  Receipt Date: 20121217
  Transmission Date: 20140127
  Serious: No
  Sender: FDA-Public Use
  Company Number: None

PATIENT
  Age: 47 Year
  Sex: Female

DRUGS (1)
  1. NATALIZUMAB [Suspect]
     Indication: MULTIPLE SCLEROSIS
     Dosage: 300 MG, EVERY 5 WEEKS, IV DRIP
     Route: 041
     Dates: start: 20121106, end: 20121106

REACTIONS (3)
  - Hyperhidrosis [None]
  - Tremor [None]
  - Muscular weakness [None]
